FAERS Safety Report 6159050-X (Version None)
Quarter: 2009Q2

REPORT INFORMATION
  Report Type: 
  Country: None (occurrence: None)
  Receive Date: 20090417
  Receipt Date: 20090408
  Transmission Date: 20091009
  Serious: Yes (Other)
  Sender: FDA-Public Use
  Company Number: US-PFIZER INC-2006065524

PATIENT
  Sex: Female
  Weight: 77 kg

DRUGS (7)
  1. PROVERA [Suspect]
     Indication: HORMONE REPLACEMENT THERAPY
     Dosage: UNK
     Route: 048
     Dates: start: 19890101, end: 19960101
  2. PROVERA [Suspect]
     Indication: MENOPAUSE
  3. PREMPRO [Suspect]
     Indication: HORMONE REPLACEMENT THERAPY
     Dosage: UNK
     Dates: start: 19990702, end: 20031101
  4. PREMPRO [Suspect]
     Indication: MENOPAUSE
  5. ESTRACE [Suspect]
     Indication: HORMONE REPLACEMENT THERAPY
     Dosage: 1 MG, UNK
     Dates: start: 19890101, end: 19960101
  6. TRIAM ^LICHTENSTEIN^ [Concomitant]
     Indication: HYPERTENSION
     Dosage: 37.5/25 MG
     Dates: start: 20010101
  7. ATENOLOL [Concomitant]
     Indication: HYPERTENSION
     Dosage: 50 MG, UNK
     Dates: start: 20010101

REACTIONS (1)
  - BREAST CANCER [None]
